FAERS Safety Report 4424832-9 (Version None)
Quarter: 2004Q3

REPORT INFORMATION
  Report Type: 
  Country: None (occurrence: None)
  Receive Date: 20040809
  Receipt Date: 20040720
  Transmission Date: 20050211
  Serious: Yes (Life-Threatening, Other)
  Sender: FDA-Public Use
  Company Number: CA-JNJFOC-20040705901

PATIENT
  Age: 29 Year
  Sex: Female

DRUGS (4)
  1. ELMIRON [Suspect]
     Indication: CYSTITIS INTERSTITIAL
     Dosage: 100 MG, 3 IN 1 DAY, ORAL
     Route: 048
     Dates: start: 20030617
  2. ADVAIR 250 DISKUS ( SERETIDE MITE) [Concomitant]
  3. SALBUTAMOL (SALBUTAMOL) [Concomitant]
  4. CELESTODERM (BETAMETHASONE  VALERATE) CREAM [Concomitant]

REACTIONS (1)
  - CHRONIC MYELOID LEUKAEMIA [None]
